FAERS Safety Report 14917510 (Version 1)
Quarter: 2018Q2

REPORT INFORMATION
  Report Type: Spontaneous
  Country: DE (occurrence: DE)
  Receive Date: 20180521
  Receipt Date: 20180521
  Transmission Date: 20180711
  Serious: Yes (Hospitalization, Other)
  Sender: FDA-Public Use
  Company Number: DE-ROCHE-2123948

PATIENT
  Sex: Male

DRUGS (5)
  1. MABTHERA [Suspect]
     Active Substance: RITUXIMAB
     Indication: RHEUMATOID ARTHRITIS
     Route: 042
     Dates: start: 20100927
  2. PREDNISOLON [Concomitant]
     Active Substance: PREDNISOLONE
     Route: 065
  3. MABTHERA [Suspect]
     Active Substance: RITUXIMAB
     Route: 042
     Dates: start: 20101011
  4. ROACTEMRA [Suspect]
     Active Substance: TOCILIZUMAB
     Indication: RHEUMATOID ARTHRITIS
     Dosage: IN TOTAL 4 INFUSIONS WERE GIVEN
     Route: 042
     Dates: start: 201001, end: 201004
  5. ENBREL [Concomitant]
     Active Substance: ETANERCEPT
     Route: 065
     Dates: end: 2010

REACTIONS (11)
  - Cervical spinal stenosis [Unknown]
  - Cerebrovascular accident [Unknown]
  - Pulmonary fibrosis [Unknown]
  - Rheumatoid arthritis [Unknown]
  - Foot fracture [Unknown]
  - Transient ischaemic attack [Unknown]
  - Cardiac aneurysm [Unknown]
  - Cerebral atrophy [Unknown]
  - Cerebral microangiopathy [Unknown]
  - Aortic valve incompetence [Unknown]
  - Activated protein C resistance [Unknown]

NARRATIVE: CASE EVENT DATE: 201004
